FAERS Safety Report 16955745 (Version 2)
Quarter: 2019Q4

REPORT INFORMATION
  Report Type: Spontaneous
  Country: US (occurrence: US)
  Receive Date: 20191024
  Receipt Date: 20191231
  Transmission Date: 20200122
  Serious: Yes (Hospitalization, Other)
  Sender: FDA-Public Use
  Company Number: US-ASTRAZENECA-2018SF47649

PATIENT
  Age: 20643 Day
  Sex: Male
  Weight: 12.2 kg

DRUGS (37)
  1. PRILOSEC [Suspect]
     Active Substance: OMEPRAZOLE MAGNESIUM
     Indication: NAUSEA
     Dosage: 20 MG GENERIC
     Route: 065
     Dates: start: 20180503, end: 20180715
  2. SEROQUEL [Concomitant]
     Active Substance: QUETIAPINE FUMARATE
  3. DIAZEPAM. [Concomitant]
     Active Substance: DIAZEPAM
  4. PRILOSEC [Suspect]
     Active Substance: OMEPRAZOLE MAGNESIUM
     Indication: NAUSEA
     Dosage: 20 MG
     Route: 048
     Dates: start: 2002, end: 2015
  5. VOLTAREN [Concomitant]
     Active Substance: DICLOFENAC SODIUM
  6. LIDODERM [Concomitant]
     Active Substance: LIDOCAINE
  7. LYRICA [Concomitant]
     Active Substance: PREGABALIN
  8. PRILOSEC [Suspect]
     Active Substance: OMEPRAZOLE MAGNESIUM
     Indication: NAUSEA
     Dosage: 20 MG
     Route: 048
     Dates: start: 2002, end: 2004
  9. PRILOSEC [Suspect]
     Active Substance: OMEPRAZOLE MAGNESIUM
     Indication: GASTROOESOPHAGEAL REFLUX DISEASE
     Dosage: 20 MG
     Route: 048
     Dates: start: 20080802, end: 20120501
  10. PRILOSEC [Suspect]
     Active Substance: OMEPRAZOLE MAGNESIUM
     Indication: GASTROOESOPHAGEAL REFLUX DISEASE
     Dosage: 20 MG
     Route: 048
     Dates: start: 2002, end: 2015
  11. PRILOSEC [Suspect]
     Active Substance: OMEPRAZOLE MAGNESIUM
     Indication: NAUSEA
     Dosage: 20 MG
     Route: 048
     Dates: start: 20080702
  12. AMITRIPTYLINE [Concomitant]
     Active Substance: AMITRIPTYLINE
  13. PAROXETINE. [Concomitant]
     Active Substance: PAROXETINE
  14. MELOXICAM. [Concomitant]
     Active Substance: MELOXICAM
  15. ESOMEPRAZOLE. [Suspect]
     Active Substance: ESOMEPRAZOLE MAGNESIUM
     Dosage: GENERIC
     Route: 065
  16. TYLENOL PM [Concomitant]
     Active Substance: ACETAMINOPHEN\DIPHENHYDRAMINE
     Indication: INFLUENZA
     Dosage: TWO TIMES A YEARS
  17. CYMBALTA [Concomitant]
     Active Substance: DULOXETINE HYDROCHLORIDE
  18. SOMA [Concomitant]
     Active Substance: CARISOPRODOL
  19. PRILOSEC [Suspect]
     Active Substance: OMEPRAZOLE MAGNESIUM
     Indication: GASTROOESOPHAGEAL REFLUX DISEASE
     Dosage: 20 MG
     Route: 048
     Dates: start: 2002, end: 2004
  20. PRILOSEC [Suspect]
     Active Substance: OMEPRAZOLE MAGNESIUM
     Indication: GASTROOESOPHAGEAL REFLUX DISEASE
     Dosage: 20 MG GENERIC
     Route: 065
     Dates: start: 20180503, end: 20180715
  21. PRILOSEC [Suspect]
     Active Substance: OMEPRAZOLE MAGNESIUM
     Indication: NAUSEA
     Dosage: 20 MG
     Route: 048
     Dates: start: 20080802, end: 20120501
  22. FLOMAX [Concomitant]
     Active Substance: TAMSULOSIN HYDROCHLORIDE
  23. MORPHINE [Concomitant]
     Active Substance: MORPHINE
  24. ZYVOX [Concomitant]
     Active Substance: LINEZOLID
  25. QUETIAPINE. [Concomitant]
     Active Substance: QUETIAPINE
  26. PRILOSEC [Suspect]
     Active Substance: OMEPRAZOLE MAGNESIUM
     Indication: GASTROOESOPHAGEAL REFLUX DISEASE
     Dosage: 20 MG
     Route: 048
     Dates: start: 20080702
  27. PAXIL [Concomitant]
     Active Substance: PAROXETINE HYDROCHLORIDE
  28. OXYCONTIN [Concomitant]
     Active Substance: OXYCODONE HYDROCHLORIDE
  29. OXYBUTYNIN. [Concomitant]
     Active Substance: OXYBUTYNIN CHLORIDE
  30. PRILOSEC [Suspect]
     Active Substance: OMEPRAZOLE MAGNESIUM
     Indication: GASTROOESOPHAGEAL REFLUX DISEASE
     Route: 048
     Dates: start: 2004, end: 2017
  31. PRILOSEC [Suspect]
     Active Substance: OMEPRAZOLE MAGNESIUM
     Indication: NAUSEA
     Route: 048
     Dates: start: 2004, end: 2017
  32. NABUMETONE. [Concomitant]
     Active Substance: NABUMETONE
  33. XARELTO [Concomitant]
     Active Substance: RIVAROXABAN
  34. METOPROLOL. [Concomitant]
     Active Substance: METOPROLOL
  35. PRAVASTATIN. [Concomitant]
     Active Substance: PRAVASTATIN
  36. ZANAFLEX [Concomitant]
     Active Substance: TIZANIDINE HYDROCHLORIDE
  37. RISPERIDONE. [Concomitant]
     Active Substance: RISPERIDONE

REACTIONS (1)
  - Acute kidney injury [Not Recovered/Not Resolved]

NARRATIVE: CASE EVENT DATE: 20170717
